FAERS Safety Report 25338009 (Version 1)
Quarter: 2025Q2

REPORT INFORMATION
  Report Type: Spontaneous
  Country: US (occurrence: US)
  Receive Date: 20250520
  Receipt Date: 20250520
  Transmission Date: 20250717
  Serious: No
  Sender: CARDINAL HEALTH
  Company Number: US-Cardinal Health 414-NPHS-AE-24-48

PATIENT
  Age: 72 Year
  Sex: Female
  Weight: 58.1 kg

DRUGS (4)
  1. LEXISCAN [Suspect]
     Active Substance: REGADENOSON
  2. CAFFEINE [Concomitant]
     Active Substance: CAFFEINE
  3. KIT FOR THE PREPARATION OF TECHNETIUM TC99M SESTAMIBI [Suspect]
     Active Substance: TECHNETIUM TC-99M SESTAMIBI
     Indication: Scan myocardial perfusion
     Route: 042
     Dates: start: 20240903, end: 20240903
  4. KIT FOR THE PREPARATION OF TECHNETIUM TC99M SESTAMIBI [Suspect]
     Active Substance: TECHNETIUM TC-99M SESTAMIBI
     Indication: Scan myocardial perfusion
     Route: 042
     Dates: start: 20240903, end: 20240903

REACTIONS (2)
  - Malaise [Unknown]
  - Fatigue [Unknown]

NARRATIVE: CASE EVENT DATE: 20240903
